FAERS Safety Report 5678185-9 (Version None)
Quarter: 2008Q1

REPORT INFORMATION
  Report Type: 
  Country: None (occurrence: None)
  Receive Date: 20080325
  Receipt Date: 20080314
  Transmission Date: 20080703
  Serious: Yes (Hospitalization, Other)
  Sender: FDA-Public Use
  Company Number: AT-ELI_LILLY_AND_COMPANY-AT200801005488

PATIENT
  Age: 71 Year
  Sex: Male

DRUGS (2)
  1. OLANZAPINE [Suspect]
     Indication: AGITATED DEPRESSION
     Dosage: 2.5 MG, 3/D
     Route: 048
     Dates: end: 20080101
  2. TRITTICO [Concomitant]
     Indication: AGITATED DEPRESSION

REACTIONS (9)
  - AGITATED DEPRESSION [None]
  - CEREBROVASCULAR ACCIDENT [None]
  - CONSCIOUSNESS FLUCTUATING [None]
  - DRUG DEPENDENCE [None]
  - GENERAL PHYSICAL HEALTH DETERIORATION [None]
  - OVERDOSE [None]
  - PARKINSONISM [None]
  - PERSONALITY CHANGE DUE TO A GENERAL MEDICAL CONDITION [None]
  - RENAL FAILURE [None]
